FAERS Safety Report 21988487 (Version 2)
Quarter: 2023Q1

REPORT INFORMATION
  Report Type: Spontaneous
  Country: US (occurrence: US)
  Receive Date: 20230214
  Receipt Date: 20230301
  Transmission Date: 20230418
  Serious: Yes (Death, Hospitalization)
  Sender: FDA-Public Use
  Company Number: US-BAUSCH-BL-2023-002195

PATIENT
  Age: 67 Year
  Sex: Male

DRUGS (4)
  1. DILTIAZEM HYDROCHLORIDE [Suspect]
     Active Substance: DILTIAZEM HYDROCHLORIDE
     Indication: Product used for unknown indication
     Dosage: INGESTION
     Route: 048
  2. UNISOM NIGHT TIME SLEEP-AID [Suspect]
     Active Substance: DIPHENHYDRAMINE HYDROCHLORIDE
     Indication: Product used for unknown indication
     Dosage: INGESTION
     Route: 048
  3. ACETAMINOPHEN [Suspect]
     Active Substance: ACETAMINOPHEN
     Dosage: INGESTION
     Route: 048
  4. ALCOHOL [Suspect]
     Active Substance: ALCOHOL
     Dosage: ETHANOL (BEVERAGE); INGESTION
     Route: 048

REACTIONS (1)
  - Completed suicide [Fatal]
